FAERS Safety Report 8165766-6 (Version None)
Quarter: 2012Q1

REPORT INFORMATION
  Report Type: 
  Country: None (occurrence: None)
  Receive Date: 20120227
  Receipt Date: 20110201
  Transmission Date: 20120608
  Serious: No
  Sender: FDA-Public Use
  Company Number: US-MYLANLABS-2011S1001484

PATIENT
  Age: 24 Year
  Sex: Male

DRUGS (2)
  1. AMNESTEEM [Suspect]
     Route: 048
     Dates: end: 20110110
  2. AMNESTEEM [Suspect]
     Indication: ACNE
     Route: 048
     Dates: start: 20101105, end: 20110110

REACTIONS (2)
  - DEPRESSION [None]
  - HEADACHE [None]
